FAERS Safety Report 18152322 (Version 2)
Quarter: 2021Q4

REPORT INFORMATION
  Report Type: Spontaneous
  Country: SG (occurrence: SG)
  Receive Date: 20200814
  Receipt Date: 20211223
  Transmission Date: 20220303
  Serious: Yes (Death, Hospitalization, Other)
  Sender: FDA-Public Use
  Company Number: SG-BAYER-2020-168526

PATIENT
  Age: 14 Year
  Sex: Male
  Weight: 84.4 kg

DRUGS (9)
  1. LAROTRECTINIB [Suspect]
     Active Substance: LAROTRECTINIB
     Indication: Soft tissue sarcoma
     Dosage: 100 MG, BID
  2. SELITRECTINIB [Suspect]
     Active Substance: SELITRECTINIB
     Indication: Soft tissue sarcoma
     Dosage: 50 MG, QD FOR 14 DAYS
     Dates: start: 20200116
  3. SELITRECTINIB [Suspect]
     Active Substance: SELITRECTINIB
     Indication: Soft tissue sarcoma
     Dosage: 50 MG, BID FOR 14 DAYS
  4. SELITRECTINIB [Suspect]
     Active Substance: SELITRECTINIB
     Indication: Soft tissue sarcoma
     Dosage: 75 MG, BID FOR 14 DAYS
     Dates: start: 20200213
  5. MORPHINE [Concomitant]
     Active Substance: MORPHINE
     Dosage: 10 MG, QD
     Route: 042
     Dates: start: 20200309
  6. PREGABALIN [Concomitant]
     Active Substance: PREGABALIN
     Indication: Neuralgia
     Dosage: 150 MG, QD
     Route: 048
  7. LORAZEPAM [Concomitant]
     Active Substance: LORAZEPAM
     Indication: Insomnia
     Dosage: 0.5 MG, QD
     Route: 048
  8. BISACODYL [Concomitant]
     Active Substance: BISACODYL
     Indication: Constipation
     Dosage: 15 MG, BID
  9. POLYETHYLENE GLYCOLS [Concomitant]
     Active Substance: POLYETHYLENE GLYCOLS
     Dosage: 2 DF, QD
     Route: 048

REACTIONS (4)
  - Soft tissue sarcoma [Fatal]
  - Drug resistance [None]
  - Acute kidney injury [Recovering/Resolving]
  - Encephalopathy [Recovered/Resolved]

NARRATIVE: CASE EVENT DATE: 20200226
